FAERS Safety Report 20418212 (Version 2)
Quarter: 2022Q1

REPORT INFORMATION
  Report Type: Report from Study
  Country: KR (occurrence: KR)
  Receive Date: 20220202
  Receipt Date: 20220206
  Transmission Date: 20220423
  Serious: Yes (Hospitalization)
  Sender: FDA-Public Use
  Company Number: KP-NOVARTISPH-NVSC2022KR020244

PATIENT
  Sex: Female
  Weight: 51.9 kg

DRUGS (53)
  1. RYDAPT [Suspect]
     Active Substance: MIDOSTAURIN
     Indication: Acute myeloid leukaemia
     Dosage: 50 MG
     Route: 048
     Dates: start: 20211029, end: 20220124
  2. CYTARABINE [Concomitant]
     Active Substance: CYTARABINE
     Indication: Acute myeloid leukaemia
     Dosage: 310 MG (STRENGTH 0.1G/2ML)
     Route: 065
     Dates: start: 20211020, end: 20211026
  3. CYTARABINE [Concomitant]
     Active Substance: CYTARABINE
     Dosage: 1530 MG (STRENGTH 2G/40ML)
     Route: 065
     Dates: start: 20211129, end: 20211203
  4. DAUNORUBICIN HYDROCHLORIDE [Concomitant]
     Active Substance: DAUNORUBICIN HYDROCHLORIDE
     Indication: Acute myeloid leukaemia
     Dosage: 139.5 MG
     Route: 065
     Dates: start: 20211020, end: 20211022
  5. WINUF [Concomitant]
     Indication: Nutritional supplementation
     Dosage: 1085 ML
     Route: 065
     Dates: start: 20211027, end: 20211115
  6. SODIUM BICARBONATE [Concomitant]
     Active Substance: SODIUM BICARBONATE
     Indication: Prophylaxis
     Dosage: 40 ML
     Route: 065
     Dates: start: 20211020, end: 20211028
  7. PIPERACILLIN SODIUM\TAZOBACTAM SODIUM [Concomitant]
     Active Substance: PIPERACILLIN SODIUM\TAZOBACTAM SODIUM
     Indication: Infection prophylaxis
     Dosage: 18 G
     Route: 065
     Dates: start: 20211025, end: 20211027
  8. GENTAMICIN [Concomitant]
     Active Substance: GENTAMICIN
     Indication: Infection prophylaxis
     Dosage: 330 MG (SHINPOONG INJECTION)
     Route: 065
     Dates: start: 20211025, end: 20211027
  9. ZOYLEX [Concomitant]
     Indication: Infection prophylaxis
     Dosage: 250 MG
     Route: 065
     Dates: start: 20211020, end: 20211114
  10. NOXAFIL [Concomitant]
     Active Substance: POSACONAZOLE
     Indication: Infection prophylaxis
     Dosage: 300 MG
     Route: 065
     Dates: start: 20211020, end: 20211114
  11. ZYPREXA [Concomitant]
     Active Substance: OLANZAPINE
     Indication: Sleep disorder
     Dosage: 10 MG
     Route: 065
     Dates: start: 20211021, end: 20211115
  12. ITOMED [Concomitant]
     Indication: Gastrooesophageal reflux disease
     Dosage: 150 MG
     Route: 065
     Dates: start: 20211020, end: 20211103
  13. FOTAGEL [Concomitant]
     Indication: Diarrhoea
     Dosage: 60 ML,(SUSPENSION)
     Route: 065
     Dates: start: 20211029, end: 20211105
  14. ALDRIN [Concomitant]
     Indication: Gastrooesophageal reflux disease
     Dosage: 1500 MG
     Route: 065
     Dates: start: 20211020, end: 20211103
  15. LIPOACTIN [Concomitant]
     Indication: Hypercholesterolaemia
     Dosage: 10 MG
     Route: 065
     Dates: start: 20211020, end: 20211103
  16. DEXAMETHASONE [Concomitant]
     Active Substance: DEXAMETHASONE
     Indication: Prophylaxis
     Dosage: 10 MG
     Route: 065
     Dates: start: 20211020, end: 20211027
  17. DEXAMETHASONE [Concomitant]
     Active Substance: DEXAMETHASONE
     Dosage: 10 MG
     Route: 065
     Dates: start: 20211129, end: 20211203
  18. SEROQUEL [Concomitant]
     Active Substance: QUETIAPINE FUMARATE
     Indication: Sleep disorder
     Dosage: 25 MG
     Route: 065
     Dates: start: 20211022, end: 20211028
  19. SEROQUEL [Concomitant]
     Active Substance: QUETIAPINE FUMARATE
     Dosage: 12.5 MG
     Route: 065
     Dates: start: 20211130, end: 20211203
  20. PREPENEM [Concomitant]
     Indication: Infection prophylaxis
     Dosage: 2000 MG
     Route: 065
     Dates: start: 20211028, end: 20211101
  21. PENIRAMIN [Concomitant]
     Indication: Prophylaxis
     Dosage: 4 MG
     Route: 065
     Dates: start: 20211019, end: 20211113
  22. LIDOCAINE [Concomitant]
     Active Substance: LIDOCAINE
     Indication: Product used for unknown indication
     Dosage: 10 ML
     Route: 065
     Dates: start: 20211018, end: 20211112
  23. MEPERIDINE [Concomitant]
     Active Substance: MEPERIDINE
     Indication: Product used for unknown indication
     Dosage: 25 MG
     Route: 065
     Dates: start: 20211102, end: 20211112
  24. POTASSIUM CHLORIDE [Concomitant]
     Active Substance: POTASSIUM CHLORIDE
     Indication: Electrolyte imbalance
     Dosage: 1800 MG
     Route: 065
     Dates: start: 20211102, end: 20211102
  25. INVANZ [Concomitant]
     Active Substance: ERTAPENEM SODIUM
     Indication: Infection prophylaxis
     Dosage: 1 G
     Route: 065
     Dates: start: 20211102, end: 20211107
  26. TOBRA [Concomitant]
     Indication: Infection prophylaxis
     Dosage: 300 MG
     Route: 065
     Dates: start: 20211103, end: 20211114
  27. POTASSIUM CHLORIDE [Concomitant]
     Active Substance: POTASSIUM CHLORIDE
     Indication: Electrolyte imbalance
     Dosage: 20 ML
     Route: 065
     Dates: start: 20211101, end: 20211114
  28. POTASSIUM CHLORIDE [Concomitant]
     Active Substance: POTASSIUM CHLORIDE
     Dosage: 20 ML
     Route: 065
     Dates: start: 20211128, end: 20211213
  29. LOPERAMIDE [Concomitant]
     Active Substance: LOPERAMIDE
     Indication: Diarrhoea
     Dosage: 6 MG
     Route: 065
     Dates: start: 20211104, end: 20211104
  30. RACECADOTRIL [Concomitant]
     Active Substance: RACECADOTRIL
     Indication: Diarrhoea
     Dosage: 300 MG
     Route: 065
     Dates: start: 20211105, end: 20211105
  31. MEROPENEM [Concomitant]
     Active Substance: MEROPENEM
     Indication: Infection prophylaxis
     Dosage: 3 G
     Route: 065
     Dates: start: 20211109, end: 20211114
  32. LASIX [Concomitant]
     Active Substance: FUROSEMIDE
     Indication: Product used for unknown indication
     Dosage: 10 MG
     Route: 065
     Dates: start: 20211111, end: 20211111
  33. YAL [Concomitant]
     Indication: Product used for unknown indication
     Dosage: 67.5 ML (SOLUTION)
     Route: 065
     Dates: start: 20211112, end: 20211112
  34. FRESOFOL MCT [Concomitant]
     Indication: Product used for unknown indication
     Dosage: 70 MG (20 ML VIAL)
     Route: 065
     Dates: start: 20211112, end: 20211112
  35. EPS [Concomitant]
     Indication: Acute myeloid leukaemia
     Dosage: 230 MG
     Route: 065
     Dates: start: 20211129, end: 20211201
  36. RAMOSETRON HYDROCHLORIDE [Concomitant]
     Active Substance: RAMOSETRON HYDROCHLORIDE
     Indication: Prophylaxis of nausea and vomiting
     Dosage: 0.3 MG
     Route: 065
     Dates: start: 20211129, end: 20211203
  37. CIPROCTAN [Concomitant]
     Indication: Infection prophylaxis
     Dosage: 1000 MG
     Route: 065
     Dates: start: 20211129, end: 202112
  38. SPORANOX [Concomitant]
     Active Substance: ITRACONAZOLE
     Indication: Prophylaxis
     Dosage: 20 ML, (SOLUTION)
     Route: 065
     Dates: start: 20211129, end: 202112
  39. LAFUTIDINE [Concomitant]
     Active Substance: LAFUTIDINE
     Indication: Gastrooesophageal reflux disease
     Dosage: 20 MG
     Route: 065
     Dates: start: 20211130, end: 202112
  40. LIPITOR [Concomitant]
     Active Substance: ATORVASTATIN CALCIUM
     Indication: Hypercholesterolaemia
     Dosage: 10 MG
     Route: 065
     Dates: start: 20211128, end: 202112
  41. COMBIFLEX PERI [Concomitant]
     Indication: Nutritional supplementation
     Dosage: 1100 ML
     Route: 065
     Dates: start: 20211203, end: 202112
  42. VITAMINS [Concomitant]
     Active Substance: VITAMINS
     Indication: Nutritional supplementation
     Dosage: UNK, (1 VIAL)
     Route: 065
     Dates: start: 20211203, end: 202112
  43. MAXIPIME [Concomitant]
     Active Substance: CEFEPIME HYDROCHLORIDE
     Indication: Infection prophylaxis
     Dosage: 2 G
     Route: 065
     Dates: start: 20220111, end: 20220113
  44. PINAVERIUM BROMIDE [Concomitant]
     Active Substance: PINAVERIUM BROMIDE
     Indication: Abdominal pain
     Dosage: 150 MG
     Route: 065
     Dates: start: 20211101, end: 20211108
  45. LENOGRASTIM [Concomitant]
     Active Substance: LENOGRASTIM
     Indication: Febrile neutropenia
     Dosage: 302 UG
     Route: 065
     Dates: start: 20211102, end: 20211111
  46. LENOGRASTIM [Concomitant]
     Active Substance: LENOGRASTIM
     Indication: Prophylaxis
     Dosage: 244 UG
     Route: 065
     Dates: start: 20211208, end: 202112
  47. LEVODROPROPIZINE [Concomitant]
     Active Substance: LEVODROPROPIZINE
     Indication: Cough
     Dosage: 180 MG
     Route: 065
     Dates: start: 20211115, end: 20211122
  48. ERDOSTEINE [Concomitant]
     Active Substance: ERDOSTEINE
     Indication: Cough
     Dosage: 600 MG
     Route: 065
     Dates: start: 20211110, end: 20211110
  49. SULFAMETHOXAZOLE\TRIMETHOPRIM [Concomitant]
     Active Substance: SULFAMETHOXAZOLE\TRIMETHOPRIM
     Indication: Infection prophylaxis
     Dosage: UNK, 800/160 MG
     Route: 065
     Dates: start: 20211129, end: 202112
  50. CARVEDILOL [Concomitant]
     Active Substance: CARVEDILOL
     Indication: Atrial fibrillation
     Dosage: 3.125 MG
     Route: 065
     Dates: start: 20211109, end: 20211114
  51. METOCLOPRAMIDE HYDROCHLORIDE [Concomitant]
     Active Substance: METOCLOPRAMIDE HYDROCHLORIDE
     Indication: Nausea
     Dosage: 10 MG
     Route: 065
     Dates: start: 20211031, end: 20211031
  52. METOCLOPRAMIDE HYDROCHLORIDE [Concomitant]
     Active Substance: METOCLOPRAMIDE HYDROCHLORIDE
     Dosage: 10 MG
     Route: 065
     Dates: start: 20210111, end: 20220117
  53. VASELINE PURE [Concomitant]
     Active Substance: PETROLATUM
     Indication: Haemorrhoids
     Dosage: 10 MG
     Route: 065
     Dates: start: 20211112, end: 20211112

REACTIONS (2)
  - Gastrointestinal pain [Recovered/Resolved]
  - Vomiting [Recovered/Resolved]

NARRATIVE: CASE EVENT DATE: 20220111
